FAERS Safety Report 9759684 (Version 1)
Quarter: 2013Q4

REPORT INFORMATION
  Report Type: Spontaneous
  Country: US (occurrence: US)
  Receive Date: 20131216
  Receipt Date: 20131216
  Transmission Date: 20140711
  Serious: No
  Sender: FDA-Public Use
  Company Number: US-GILEAD-2010-0028663

PATIENT
  Sex: Female
  Weight: 96.61 kg

DRUGS (15)
  1. LETAIRIS [Suspect]
     Indication: PULMONARY ARTERIAL HYPERTENSION
     Route: 048
     Dates: start: 20100331
  2. TRICOR [Concomitant]
  3. OXYGEN [Concomitant]
  4. DARVOCET-N [Concomitant]
  5. NIACIN [Concomitant]
  6. XANAX [Concomitant]
  7. LASIX [Concomitant]
  8. SYNTHROID [Concomitant]
  9. ZOLOFT [Concomitant]
  10. COUMADIN [Concomitant]
  11. METOLAZONE [Concomitant]
  12. ADVAIR 100-50 DISKUS [Concomitant]
  13. METOPROLOL TARTRATE [Concomitant]
  14. POTASSIUM CHLOR [Concomitant]
  15. FISH OIL [Concomitant]

REACTIONS (1)
  - Dyspnoea [Unknown]
